FAERS Safety Report 13652259 (Version 1)
Quarter: 2017Q2

REPORT INFORMATION
  Report Type: Spontaneous
  Country: US (occurrence: US)
  Receive Date: 20170614
  Receipt Date: 20170614
  Transmission Date: 20170830
  Serious: Yes (Other)
  Sender: FDA-Public Use
  Company Number: US-SAOL THERAPEUTICS-2017SAO01016

PATIENT
  Sex: Male

DRUGS (1)
  1. BACLOFEN. [Suspect]
     Active Substance: BACLOFEN
     Indication: MUSCLE SPASTICITY
     Dosage: 115 ?G, \DAY
     Route: 037

REACTIONS (2)
  - Drug withdrawal syndrome [Unknown]
  - Dose calculation error [Recovered/Resolved]

NARRATIVE: CASE EVENT DATE: 20170605
